FAERS Safety Report 23089741 (Version 3)
Quarter: 2023Q4

REPORT INFORMATION
  Report Type: Report from Study
  Country: GB (occurrence: GB)
  Receive Date: 20231020
  Receipt Date: 20231226
  Transmission Date: 20240110
  Serious: Yes (Other)
  Sender: FDA-Public Use
  Company Number: GB-002147023-NVSC2023GB137753

PATIENT
  Age: 34 Year
  Sex: Female

DRUGS (4)
  1. KESIMPTA [Suspect]
     Active Substance: OFATUMUMAB
     Indication: Multiple sclerosis
     Dosage: 20 MG, QW
     Route: 058
     Dates: start: 20230608
  2. KESIMPTA [Suspect]
     Active Substance: OFATUMUMAB
     Dosage: 20 MG, QW
     Route: 058
     Dates: start: 20230619
  3. KESIMPTA [Suspect]
     Active Substance: OFATUMUMAB
     Dosage: 20 MG, Q2W (4TH DOSE)
     Route: 058
     Dates: start: 20230710
  4. KESIMPTA [Suspect]
     Active Substance: OFATUMUMAB
     Dosage: 20 MG, QMO
     Route: 058

REACTIONS (16)
  - Epilepsy [Unknown]
  - Systemic infection [Recovering/Resolving]
  - Malaise [Unknown]
  - Dizziness [Unknown]
  - Rash vesicular [Recovering/Resolving]
  - Scab [Unknown]
  - Skin weeping [Unknown]
  - Rash [Unknown]
  - Impetigo [Unknown]
  - Decreased immune responsiveness [Unknown]
  - Spinal pain [Unknown]
  - Influenza like illness [Unknown]
  - Fatigue [Unknown]
  - Pain [Recovering/Resolving]
  - Urinary tract infection [Recovered/Resolved]
  - Product storage error [Unknown]

NARRATIVE: CASE EVENT DATE: 20230608
